FAERS Safety Report 25013248 (Version 2)
Quarter: 2025Q3

REPORT INFORMATION
  Report Type: Spontaneous
  Country: GB (occurrence: GB)
  Receive Date: 20250226
  Receipt Date: 20250718
  Transmission Date: 20251021
  Serious: Yes (Hospitalization, Other)
  Sender: AUROBINDO
  Company Number: GB-MHRA-34664063

PATIENT
  Age: 18 Day

DRUGS (1)
  1. SERTRALINE HYDROCHLORIDE [Suspect]
     Active Substance: SERTRALINE HYDROCHLORIDE
     Indication: Product used for unknown indication
     Dosage: 100 MILLIGRAM, ONCE A DAY
     Route: 064

REACTIONS (6)
  - Subdural haemorrhage neonatal [Unknown]
  - Subgaleal haemorrhage [Unknown]
  - Subarachnoid haemorrhage neonatal [Unknown]
  - Platelet count decreased [Unknown]
  - Foetal exposure during pregnancy [Unknown]
  - Neonatal disorder [Recovered/Resolved]
